FAERS Safety Report 8060924-3 (Version None)
Quarter: 2012Q1

REPORT INFORMATION
  Report Type: 
  Country: None (occurrence: None)
  Receive Date: 20120120
  Receipt Date: 20110328
  Transmission Date: 20120608
  Serious: No
  Sender: FDA-Public Use
  Company Number: US-ALLERGAN-1104373US

PATIENT
  Age: 74 Year
  Sex: Male

DRUGS (2)
  1. RESTASIS [Suspect]
     Indication: DRY EYE
     Dosage: UNK
  2. OTC EYE DROPS [Concomitant]
     Dosage: UNK

REACTIONS (3)
  - OCULAR HYPERAEMIA [None]
  - EYE IRRITATION [None]
  - ASTHENOPIA [None]
